FAERS Safety Report 9337782 (Version 2)
Quarter: 2013Q3

REPORT INFORMATION
  Report Type: Spontaneous
  Country: US (occurrence: US)
  Receive Date: 20130607
  Receipt Date: 20130906
  Transmission Date: 20140515
  Serious: No
  Sender: FDA-Public Use
  Company Number: US-ASTRAZENECA-2013SE37767

PATIENT
  Age: 64 Year
  Sex: Male
  Weight: 73.9 kg

DRUGS (8)
  1. NEXIUM [Suspect]
     Indication: GASTROOESOPHAGEAL REFLUX DISEASE
     Route: 048
     Dates: end: 2011
  2. OMEPRAZOLE [Suspect]
     Indication: GASTROOESOPHAGEAL REFLUX DISEASE
     Route: 048
     Dates: start: 2011
  3. METFORMIN [Concomitant]
     Indication: DIABETES MELLITUS
     Dates: start: 2001
  4. RAMIPRIL [Concomitant]
     Indication: BLOOD PRESSURE ABNORMAL
     Dates: start: 2003
  5. CADUET [Concomitant]
     Indication: BLOOD PRESSURE ABNORMAL
     Dosage: 4/4 DAILY
     Dates: start: 2009
  6. CADUET [Concomitant]
     Indication: BLOOD CHOLESTEROL
     Dosage: 4/4 DAILY
     Dates: start: 2009
  7. METHSCOPOLAMINE BROMIDE [Concomitant]
     Indication: IRRITABLE BOWEL SYNDROME
  8. PROBIOTIC [Concomitant]
     Dosage: DAILY

REACTIONS (4)
  - Irritable bowel syndrome [Unknown]
  - Dry mouth [Unknown]
  - Therapeutic response decreased [Not Recovered/Not Resolved]
  - Intentional drug misuse [Unknown]
